FAERS Safety Report 7582935-4 (Version None)
Quarter: 2011Q2

REPORT INFORMATION
  Report Type: 
  Country: None (occurrence: None)
  Receive Date: 20110630
  Receipt Date: 20090108
  Transmission Date: 20111010
  Serious: Yes (Death, Other)
  Sender: FDA-Public Use
  Company Number: US-BAYER-200910073NA

PATIENT
  Age: 56 Year
  Sex: Male
  Weight: 77 kg

DRUGS (17)
  1. NORVASC [Concomitant]
     Dosage: UNK
     Route: 048
     Dates: start: 20040101, end: 20060307
  2. FUROSEMIDE [Concomitant]
     Dosage: 100 MG, UNK
     Route: 042
     Dates: start: 20051120, end: 20051120
  3. PHENYLEPHRINE HCL [Concomitant]
     Dosage: 640 UNK, UNK
     Route: 042
     Dates: start: 20051120, end: 20051120
  4. AMINOCAPROIC ACID [Concomitant]
     Dosage: 5 G, UNK
     Route: 042
     Dates: start: 20051120, end: 20051120
  5. FRESH FROZEN PLASMA [Concomitant]
     Dosage: 550 ML, UNK
     Route: 042
     Dates: start: 20051120
  6. DOPAMINE HCL [Concomitant]
     Dosage: UNK
     Route: 042
     Dates: start: 20051120
  7. PLATELETS [Concomitant]
     Dosage: 231 ML, UNK
     Route: 042
     Dates: start: 20051120
  8. TRASYLOL [Suspect]
     Indication: CARDIAC OPERATION
     Dosage: 200 ML, LOADING DOSE
     Route: 042
     Dates: start: 20051120, end: 20051120
  9. TRASYLOL [Suspect]
     Indication: AORTIC DISSECTION
     Dosage: 50 ML/HOUR INFUSION
     Route: 042
     Dates: start: 20051120, end: 20051120
  10. MANNITOL [Concomitant]
     Dosage: 100 G, UNK
     Route: 042
     Dates: start: 20051120, end: 20051120
  11. HEPARIN [Concomitant]
     Dosage: 250000 U, UNK
     Route: 042
     Dates: start: 20051120, end: 20051120
  12. TRASYLOL [Suspect]
     Indication: FASCIOTOMY
  13. ESMOLOL [Concomitant]
     Dosage: 30 MG, UNK
     Route: 042
     Dates: start: 20051120, end: 20051120
  14. VANCOMYCIN [Concomitant]
     Dosage: 500 MG, UNK
     Route: 042
     Dates: start: 20051120, end: 20051120
  15. TRASYLOL [Suspect]
     Indication: CARDIOPULMONARY BYPASS
  16. AMIODARONE HCL [Concomitant]
     Dosage: 159 MG, UNK
     Route: 042
     Dates: start: 20051120, end: 20051120
  17. PACKED RED BLOOD CELLS [Concomitant]
     Dosage: 1250 ML, UNK
     Route: 042
     Dates: start: 20051120

REACTIONS (13)
  - INJURY [None]
  - PAIN [None]
  - DEHYDRATION [None]
  - UNRESPONSIVE TO STIMULI [None]
  - HAEMODIALYSIS [None]
  - POST PROCEDURAL COMPLICATION [None]
  - MULTIPLE INJURIES [None]
  - RHABDOMYOLYSIS [None]
  - SEPSIS [None]
  - CARDIO-RESPIRATORY ARREST [None]
  - UNEVALUABLE EVENT [None]
  - RENAL FAILURE [None]
  - FEMORAL PULSE DECREASED [None]
